FAERS Safety Report 10022456 (Version 1)
Quarter: 2014Q1

REPORT INFORMATION
  Report Type: Spontaneous
  Country: US (occurrence: US)
  Receive Date: 20140319
  Receipt Date: 20140319
  Transmission Date: 20141002
  Serious: No
  Sender: FDA-Public Use
  Company Number: US-009507513-1403USA004364

PATIENT
  Sex: Female

DRUGS (1)
  1. BAIN DE SOLEIL SPRAY TRANSPARE CONTINUOUS SPRAY SPF-10 [Suspect]
     Indication: PRODUCT USED FOR UNKNOWN INDICATION
     Dosage: UNK, UNKNOWN
     Route: 061

REACTIONS (2)
  - Rash erythematous [Unknown]
  - Pruritus [Unknown]
